FAERS Safety Report 9164302 (Version 1)
Quarter: 2013Q1

REPORT INFORMATION
  Report Type: Spontaneous
  Country: US (occurrence: None)
  Receive Date: 20130226
  Receipt Date: 20130226
  Transmission Date: 20140127
  Serious: Yes (Life-Threatening, Hospitalization, Disabling, Other)
  Sender: FDA-Public Use
  Company Number: 2012-19982

PATIENT
  Sex: 0

DRUGS (1)
  1. MORPHINE SULFATE (UNKNOWN) (MORPHINE SULFATE) UNK, UNKUNK [Suspect]
     Indication: BACK PAIN

REACTIONS (3)
  - Monoplegia [None]
  - Injection site granuloma [None]
  - Infusion site abscess [None]
